FAERS Safety Report 9314683 (Version 4)
Quarter: 2013Q3

REPORT INFORMATION
  Report Type: Spontaneous
  Country: CN (occurrence: CN)
  Receive Date: 20130529
  Receipt Date: 20130708
  Transmission Date: 20140515
  Serious: Yes (Death, Life-Threatening, Other)
  Sender: FDA-Public Use
  Company Number: CN-ROCHE-1229772

PATIENT
  Age: 44 Year
  Sex: Male
  Weight: 82 kg

DRUGS (18)
  1. MABTHERA [Suspect]
     Indication: DIFFUSE LARGE B-CELL LYMPHOMA
     Route: 041
     Dates: start: 20121031, end: 20121031
  2. MABTHERA [Suspect]
     Route: 041
     Dates: start: 20121126, end: 20121126
  3. MABTHERA [Suspect]
     Route: 041
     Dates: start: 20121217, end: 20121217
  4. MABTHERA [Suspect]
     Route: 041
     Dates: start: 20121031, end: 20121031
  5. MABTHERA [Suspect]
     Route: 041
     Dates: start: 20121126, end: 20121126
  6. MABTHERA [Suspect]
     Route: 041
     Dates: start: 20121217, end: 20121217
  7. MABTHERA [Suspect]
     Route: 041
  8. VINCRISTINE [Suspect]
     Indication: DIFFUSE LARGE B-CELL LYMPHOMA
     Route: 042
     Dates: start: 20121101, end: 20121101
  9. VINCRISTINE [Suspect]
     Route: 042
     Dates: start: 20121127, end: 20121127
  10. VINCRISTINE [Suspect]
     Route: 042
     Dates: start: 20121217, end: 20121217
  11. CYCLOPHOSPHAMIDE [Concomitant]
     Indication: DIFFUSE LARGE B-CELL LYMPHOMA
     Route: 042
     Dates: start: 20121101, end: 20121101
  12. CYCLOPHOSPHAMIDE [Concomitant]
     Route: 042
     Dates: start: 20121127, end: 20121127
  13. CYCLOPHOSPHAMIDE [Concomitant]
     Route: 042
     Dates: start: 20121217, end: 20121217
  14. ADRIAMYCIN RDF [Concomitant]
     Indication: DIFFUSE LARGE B-CELL LYMPHOMA
     Route: 065
     Dates: start: 201212
  15. EPIRUBICIN HYDROCHLORIDE [Concomitant]
     Route: 041
     Dates: start: 20121101, end: 20121102
  16. EPIRUBICIN HYDROCHLORIDE [Concomitant]
     Route: 041
     Dates: start: 20121127, end: 20121128
  17. EPIRUBICIN HYDROCHLORIDE [Concomitant]
     Route: 041
     Dates: start: 20121217, end: 20121218
  18. PREDNISONE [Concomitant]
     Indication: DIFFUSE LARGE B-CELL LYMPHOMA
     Route: 048
     Dates: start: 20121101, end: 20121222

REACTIONS (5)
  - Hepatitis fulminant [Fatal]
  - Hepatic failure [Fatal]
  - Hepatitis [Fatal]
  - Hepatic function abnormal [Not Recovered/Not Resolved]
  - Hepatitis B [Not Recovered/Not Resolved]
